FAERS Safety Report 5911673-6 (Version None)
Quarter: 2008Q4

REPORT INFORMATION
  Report Type: 
  Country: None (occurrence: None)
  Receive Date: 20081007
  Receipt Date: 20080925
  Transmission Date: 20090506
  Serious: Yes (Other)
  Sender: FDA-Public Use
  Company Number: FR-ELI_LILLY_AND_COMPANY-FR200809003347

PATIENT
  Age: 58 Year
  Sex: Female

DRUGS (8)
  1. BYETTA [Suspect]
     Indication: TYPE 2 DIABETES MELLITUS
     Dosage: 5 UG, 2/D
     Route: 058
     Dates: start: 20080812, end: 20080826
  2. PYOSTACINE [Concomitant]
     Indication: ANTIBIOTIC THERAPY
     Dosage: 500 MG SIX TIMES DAILY.
     Route: 048
     Dates: start: 20080806, end: 20080816
  3. PYOSTACINE [Concomitant]
     Dosage: UNK, UNKNOWN
     Route: 065
     Dates: start: 20080821
  4. OFLOCET [Concomitant]
     Indication: ANTIBIOTIC THERAPY
     Dosage: 400 MG, DAILY (1/D)
     Route: 065
     Dates: start: 20080806, end: 20080816
  5. OFLOCET [Concomitant]
     Dosage: UNK, UNKNOWN
     Route: 065
     Dates: start: 20080821
  6. NOVONORM [Concomitant]
     Indication: TYPE 2 DIABETES MELLITUS
     Dosage: UNK, UNKNOWN
     Route: 065
  7. ACTOS [Concomitant]
     Indication: TYPE 2 DIABETES MELLITUS
     Dosage: UNK, UNKNOWN
     Route: 065
  8. LANTUS [Concomitant]
     Indication: TYPE 2 DIABETES MELLITUS
     Dosage: UNK, UNKNOWN
     Route: 065

REACTIONS (6)
  - ANTIBIOTIC LEVEL BELOW THERAPEUTIC [None]
  - DRUG INTERACTION [None]
  - IMPAIRED HEALING [None]
  - OSTEITIS [None]
  - OSTEOLYSIS [None]
  - WOUND INFECTION [None]
